FAERS Safety Report 9322667 (Version 2)
Quarter: 2013Q3

REPORT INFORMATION
  Report Type: Spontaneous
  Country: US (occurrence: US)
  Receive Date: 20130601
  Receipt Date: 20130730
  Transmission Date: 20140515
  Serious: Yes (Other)
  Sender: FDA-Public Use
  Company Number: US-009507513-1305USA014611

PATIENT
  Age: 17 Year
  Sex: Male

DRUGS (3)
  1. PROVENTIL [Suspect]
     Indication: ASTHMA
     Dosage: ORAL INHALATION, AS NEEDED
     Route: 055
  2. ALBUTEROL [Concomitant]
  3. KEPRA [Concomitant]

REACTIONS (6)
  - Convulsion [Recovering/Resolving]
  - Dyspnoea [Recovering/Resolving]
  - Drug dose omission [Unknown]
  - Inappropriate schedule of drug administration [Unknown]
  - Product quality issue [Unknown]
  - Road traffic accident [Recovering/Resolving]
